FAERS Safety Report 5713338-2 (Version None)
Quarter: 2008Q2

REPORT INFORMATION
  Report Type: 
  Country: None (occurrence: None)
  Receive Date: 20080418
  Receipt Date: 20080410
  Transmission Date: 20081010
  Serious: No
  Sender: FDA-Public Use
  Company Number: 20085011

PATIENT
  Age: 35 Year
  Sex: Female

DRUGS (1)
  1. LIORESAL [Suspect]
     Indication: MUSCLE SPASTICITY
     Dosage: -450 MCG, DAILY, INTRATHECAL
     Route: 037

REACTIONS (9)
  - DRUG WITHDRAWAL SYNDROME [None]
  - INTESTINAL ISCHAEMIA [None]
  - INTESTINAL OBSTRUCTION [None]
  - LABILE BLOOD PRESSURE [None]
  - MUSCLE SPASTICITY [None]
  - PNEUMONIA [None]
  - URINARY TRACT INFECTION [None]
  - WHITE BLOOD CELL COUNT DECREASED [None]
  - WHITE BLOOD CELL COUNT INCREASED [None]
